FAERS Safety Report 25382264 (Version 1)
Quarter: 2025Q2

REPORT INFORMATION
  Report Type: Report from Study
  Country: US (occurrence: US)
  Receive Date: 20250531
  Receipt Date: 20250531
  Transmission Date: 20250717
  Serious: Yes (Life-Threatening, Hospitalization)
  Sender: GLAXOSMITHKLINE
  Company Number: US-GSK-US2025AMR067746

PATIENT

DRUGS (2)
  1. MEPOLIZUMAB [Suspect]
     Active Substance: MEPOLIZUMAB
     Indication: Asthma
  2. SEREVENT DISKUS [Suspect]
     Active Substance: SALMETEROL XINAFOATE
     Indication: Asthma

REACTIONS (3)
  - Asthma [Unknown]
  - Sleep disorder due to a general medical condition [Unknown]
  - Drug effect less than expected [Unknown]
